FAERS Safety Report 6313935-X (Version None)
Quarter: 2009Q3

REPORT INFORMATION
  Report Type: 
  Country: None (occurrence: None)
  Receive Date: 20090818
  Receipt Date: 20090817
  Transmission Date: 20100115
  Serious: Yes (Death)
  Sender: FDA-Public Use
  Company Number: US-AMGEN-US359432

PATIENT
  Sex: Male

DRUGS (3)
  1. NPLATE [Suspect]
     Indication: IDIOPATHIC THROMBOCYTOPENIC PURPURA
     Dates: start: 20090710, end: 20090710
  2. CORTICOSTEROID NOS [Concomitant]
     Dates: start: 20090625, end: 20090714
  3. IMMUNOGLOBULINS [Concomitant]
     Dates: start: 20090705, end: 20090714

REACTIONS (1)
  - HEPATIC FAILURE [None]
